FAERS Safety Report 8191233-X (Version None)
Quarter: 2012Q1

REPORT INFORMATION
  Report Type: 
  Country: None (occurrence: None)
  Receive Date: 20120221
  Receipt Date: 20120105
  Transmission Date: 20120608
  Serious: No
  Sender: FDA-Public Use
  Company Number: 048891

PATIENT
  Sex: Female
  Weight: 55.3 kg

DRUGS (5)
  1. LACOSAMIDE [Suspect]
     Indication: CONVULSION
     Dosage: (150 MG BID, FREQUENCY: 150 MG IN AM AND 150 MG IN PM ORAL)
     Route: 048
     Dates: start: 20110101
  2. KEPPRA [Suspect]
     Indication: CONVULSION
     Dosage: (1000 MG QD ORAL)
     Route: 048
     Dates: start: 20020101
  3. LAMICTAL [Concomitant]
  4. CITALOPRAM [Concomitant]
  5. PANTOPRAZOLE [Suspect]
     Indication: ABDOMINAL DISCOMFORT
     Dosage: (40 MG BID ORAL)
     Route: 048
     Dates: start: 20110101

REACTIONS (1)
  - TOOTH DISORDER [None]
